FAERS Safety Report 4299410-5 (Version None)
Quarter: 2004Q1

REPORT INFORMATION
  Report Type: 
  Country: None (occurrence: None)
  Receive Date: 20040217
  Receipt Date: 20040203
  Transmission Date: 20041129
  Serious: Yes (Other)
  Sender: FDA-Public Use
  Company Number: 2003029996

PATIENT
  Age: 68 Year
  Sex: Male

DRUGS (5)
  1. VIAGRA [Suspect]
     Indication: ERECTILE DYSFUNCTION
     Dosage: 50 MG
     Dates: end: 20030101
  2. FELODIPINE [Concomitant]
  3. PRAVASTATIN [Concomitant]
  4. MOXONIDINE (MONOXIDINE) [Concomitant]
  5. HYZAAR [Concomitant]

REACTIONS (1)
  - TACHYCARDIA [None]
